FAERS Safety Report 5599711-4 (Version None)
Quarter: 2008Q1

REPORT INFORMATION
  Report Type: 
  Country: None (occurrence: None)
  Receive Date: 20080123
  Receipt Date: 20080117
  Transmission Date: 20080703
  Serious: Yes (Other)
  Sender: FDA-Public Use
  Company Number: PHRM2008FR00473

PATIENT
  Age: 44 Year
  Sex: Female
  Weight: 79 kg

DRUGS (12)
  1. TRILEPTAL [Suspect]
     Indication: NEURALGIA
     Dosage: 120 MG, BID
     Route: 048
     Dates: start: 20071105
  2. PROPOFAN ^AVENTIS^ [Concomitant]
  3. LAROXYL [Concomitant]
     Indication: NEURALGIA
     Dosage: 15 DRP, QD
     Route: 048
     Dates: start: 20070401
  4. LIDOCAINE [Concomitant]
     Indication: NEURALGIA
     Dosage: UNK, UNK
     Dates: start: 20070701
  5. METHOTREXATE [Concomitant]
     Indication: RHEUMATOID ARTHRITIS
     Dosage: 15 MG, QW
     Dates: start: 20020101
  6. LEDERFOLIN [Concomitant]
     Indication: RHEUMATOID ARTHRITIS
     Dosage: 3 DF/WEEK
     Dates: start: 20020101
  7. CORTANCYL [Concomitant]
     Indication: RHEUMATOID ARTHRITIS
     Dosage: 5 MG, QD
     Dates: start: 19970101
  8. HYDROCORTISONE [Concomitant]
     Indication: ADRENAL INSUFFICIENCY
     Dosage: 20 MG, QD
     Dates: start: 19970101
  9. FLUDROCORTISONE ACETATE [Concomitant]
     Indication: ADRENAL INSUFFICIENCY
     Dosage: 50 UG, QD
     Dates: start: 19970101
  10. DIFFU K [Concomitant]
     Route: 048
     Dates: start: 19970101
  11. MAG 2 [Concomitant]
     Route: 048
     Dates: start: 19970101
  12. CACIT VITAMINE D3 [Concomitant]
     Route: 048
     Dates: start: 19970101

REACTIONS (8)
  - BLOOD CALCIUM DECREASED [None]
  - BLOOD PARATHYROID HORMONE INCREASED [None]
  - BLOOD PHOSPHORUS DECREASED [None]
  - HYPERPARATHYROIDISM SECONDARY [None]
  - HYPOCALCAEMIA [None]
  - MUSCLE SPASMS [None]
  - URINE CALCIUM INCREASED [None]
  - VITAMIN D DECREASED [None]
